FAERS Safety Report 7744078-6 (Version None)
Quarter: 2011Q3

REPORT INFORMATION
  Report Type: 
  Country: None (occurrence: None)
  Receive Date: 20110912
  Receipt Date: 20110909
  Transmission Date: 20111222
  Serious: Yes (Death, Hospitalization, Other)
  Sender: FDA-Public Use
  Company Number: DE-ABBOTT-11P-062-0852688-00

PATIENT
  Sex: Male
  Weight: 72 kg

DRUGS (2)
  1. TRUVADA [Concomitant]
     Indication: PRODUCT USED FOR UNKNOWN INDICATION
     Dosage: DAILY DOSE: 1 TAB
     Route: 048
     Dates: start: 20090611
  2. KALETRA [Suspect]
     Indication: HIV INFECTION
     Dosage: DAILY DOSE: 800MG
     Route: 048
     Dates: start: 20090611

REACTIONS (2)
  - PNEUMONIA [None]
  - HODGKIN'S DISEASE LYMPHOCYTE PREDOMINANCE TYPE STAGE IV [None]
